FAERS Safety Report 7719375-0 (Version None)
Quarter: 2011Q3

REPORT INFORMATION
  Report Type: 
  Country: None (occurrence: None)
  Receive Date: 20110830
  Receipt Date: 20110822
  Transmission Date: 20111222
  Serious: Yes (Other)
  Sender: FDA-Public Use
  Company Number: US-BAYER-201036897NA

PATIENT
  Age: 19 Year
  Sex: Female
  Weight: 111 kg

DRUGS (3)
  1. IBUPROFEN [Concomitant]
     Dosage: UNK
     Dates: start: 20090101
  2. YAZ [Suspect]
     Indication: CONTRACEPTION
     Dosage: UNK
     Dates: start: 20090101, end: 20090901
  3. AZITHROMYCIN [Concomitant]
     Dosage: UNK
     Dates: start: 20090501

REACTIONS (9)
  - DYSPNOEA [None]
  - PAIN [None]
  - DYSPHAGIA [None]
  - MUSCULOSKELETAL PAIN [None]
  - GALLBLADDER DISORDER [None]
  - CHEST PAIN [None]
  - CHOLELITHIASIS [None]
  - BILIARY COLIC [None]
  - CHOLECYSTITIS CHRONIC [None]
